FAERS Safety Report 9676194 (Version 1)
Quarter: 2013Q4

REPORT INFORMATION
  Report Type: Spontaneous
  Country: GB (occurrence: GB)
  Receive Date: 20131107
  Receipt Date: 20131107
  Transmission Date: 20140711
  Serious: Yes (Disabling)
  Sender: FDA-Public Use
  Company Number: GB-WATSON-2013-20430

PATIENT
  Age: 50 Year
  Sex: Male

DRUGS (5)
  1. ROPINIROLE (UNKNOWN) [Suspect]
     Indication: PARKINSON^S DISEASE
     Dosage: 24 MG, DAILY
     Route: 048
     Dates: start: 2005, end: 201310
  2. SINEMET [Concomitant]
     Indication: PRODUCT USED FOR UNKNOWN INDICATION
     Dosage: 125 MG, QID
     Route: 065
     Dates: start: 2007
  3. RASAGILINE [Concomitant]
     Indication: PRODUCT USED FOR UNKNOWN INDICATION
     Dosage: UNK
     Route: 065
  4. DOMPERIDONE [Concomitant]
     Indication: PRODUCT USED FOR UNKNOWN INDICATION
     Dosage: UNK
     Route: 065
  5. RAMIPRIL [Concomitant]
     Indication: PRODUCT USED FOR UNKNOWN INDICATION
     Dosage: UNK
     Route: 065

REACTIONS (3)
  - Obsessive-compulsive personality disorder [Unknown]
  - Hypersexuality [Unknown]
  - Mental disorder [Unknown]
